FAERS Safety Report 23389181 (Version 2)
Quarter: 2024Q1

REPORT INFORMATION
  Report Type: Spontaneous
  Country: ES (occurrence: ES)
  Receive Date: 20240110
  Receipt Date: 20240119
  Transmission Date: 20240410
  Serious: Yes (Hospitalization)
  Sender: FDA-Public Use
  Company Number: ES-ROCHE-3483927

PATIENT
  Age: 58 Year
  Sex: Female
  Weight: 72 kg

DRUGS (4)
  1. CARBOPLATIN [Suspect]
     Active Substance: CARBOPLATIN
     Indication: HER2 positive breast cancer
     Dosage: LAST DOSE BEFORE SAE: 17/11/2021, DOSE: 2AUC
     Route: 042
     Dates: start: 20211117, end: 20211117
  2. PACLITAXEL [Suspect]
     Active Substance: PACLITAXEL
     Indication: HER2 positive breast cancer
     Dosage: 2 COURSES
     Route: 042
     Dates: start: 20211103, end: 20211117
  3. TRASTUZUMAB [Suspect]
     Active Substance: TRASTUZUMAB
     Indication: HER2 positive breast cancer
     Dosage: ON 03/NOV/2021, SHE RECEIVED HER LAST DOSE BEFORE SAE.?ROUTE OF ADMIN. INTRAVENOUS (NOT OTHERWISE SP
     Dates: start: 20211103, end: 20230426
  4. PERTUZUMAB [Concomitant]
     Active Substance: PERTUZUMAB
     Indication: HER2 positive breast cancer
     Dosage: ON 03/NOV/2021, SHE RECEIVED HER LAST DOSE BEFORE SAE.
     Dates: start: 20211103, end: 20220325

REACTIONS (1)
  - Adverse drug reaction [Recovered/Resolved]

NARRATIVE: CASE EVENT DATE: 20211117
